FAERS Safety Report 16008099 (Version 3)
Quarter: 2019Q3

REPORT INFORMATION
  Report Type: Report from Study
  Country: FR (occurrence: FR)
  Receive Date: 20190226
  Receipt Date: 20190917
  Transmission Date: 20191004
  Serious: Yes (Other)
  Sender: FDA-Public Use
  Company Number: FR-PFIZER INC-2019072775

PATIENT
  Age: 72 Year
  Sex: Female
  Weight: 77 kg

DRUGS (19)
  1. IRBESARTAN. [Concomitant]
     Active Substance: IRBESARTAN
     Indication: HYPERTENSION
     Dosage: UNK
     Dates: start: 1983
  2. TRAMADOL. [Concomitant]
     Active Substance: TRAMADOL
     Indication: PAIN
     Dosage: UNK
     Dates: start: 20180622
  3. PALBOCICLIB [Suspect]
     Active Substance: PALBOCICLIB
     Indication: BREAST CANCER METASTATIC
     Dosage: 100 MG, CYCLIC
     Route: 048
     Dates: start: 20171005, end: 20181109
  4. LETROZOLE. [Suspect]
     Active Substance: LETROZOLE
     Indication: BREAST CANCER METASTATIC
     Dosage: 2.5 MG, UNK
     Route: 048
     Dates: start: 20171005
  5. UVEDOSE [Concomitant]
     Active Substance: CHOLECALCIFEROL
     Indication: VITAMIN D DEFICIENCY
     Dosage: UNK
  6. IZALGI [Concomitant]
     Active Substance: ACETAMINOPHEN\OPIUM
     Indication: PAIN
     Dosage: UNK
     Dates: start: 201709
  7. VITAMIN B12 [Concomitant]
     Active Substance: CYANOCOBALAMIN
     Indication: VITAMIN SUPPLEMENTATION
     Dosage: UNK
     Dates: start: 201709
  8. BISOPROLOL [Concomitant]
     Active Substance: BISOPROLOL
     Indication: HYPERTENSION
     Dosage: UNK
     Dates: start: 1983
  9. FUMAFER [Concomitant]
     Active Substance: FERROUS FUMARATE
     Indication: ANAEMIA
     Dosage: UNK
     Dates: start: 20180621
  10. IMOVANE [Concomitant]
     Active Substance: ZOPICLONE
     Indication: SLEEP DISORDER
     Dosage: UNK
     Dates: start: 2016
  11. LUMIGAN [Concomitant]
     Active Substance: BIMATOPROST
     Indication: INTRAOCULAR PRESSURE TEST
     Dosage: UNK
     Dates: start: 2013
  12. PARIET [Concomitant]
     Active Substance: RABEPRAZOLE SODIUM
     Indication: PROPHYLAXIS
     Dosage: UNK
     Dates: start: 1973
  13. METFORMIN [Concomitant]
     Active Substance: METFORMIN HYDROCHLORIDE
     Indication: DIABETES MELLITUS
     Dosage: UNK
     Dates: start: 1973
  14. KARDEGIC [Concomitant]
     Active Substance: ASPIRIN DL-LYSINE
     Indication: PROPHYLAXIS
     Dosage: UNK
  15. ARANESP [Concomitant]
     Active Substance: DARBEPOETIN ALFA
     Indication: ANAEMIA
     Dosage: UNK
     Dates: start: 20180621
  16. LYRICA [Concomitant]
     Active Substance: PREGABALIN
     Indication: PAIN
     Dosage: UNK
     Dates: start: 20180622
  17. MAGNESIUM [Concomitant]
     Active Substance: MAGNESIUM
     Indication: MAGNESIUM DEFICIENCY
     Dosage: UNK
     Dates: start: 20180215
  18. FLUVASTATIN [Concomitant]
     Active Substance: FLUVASTATIN SODIUM
     Indication: BLOOD CHOLESTEROL ABNORMAL
     Dosage: UNK
     Dates: start: 1983
  19. DAFALGAN [Concomitant]
     Active Substance: ACETAMINOPHEN
     Indication: PAIN
     Dosage: UNK
     Dates: start: 201709

REACTIONS (2)
  - Second primary malignancy [Recovered/Resolved]
  - Squamous cell carcinoma of the hypopharynx [Recovered/Resolved]

NARRATIVE: CASE EVENT DATE: 20181031
